FAERS Safety Report 7323177-7 (Version None)
Quarter: 2011Q1

REPORT INFORMATION
  Report Type: 
  Country: None (occurrence: None)
  Receive Date: 20110301
  Receipt Date: 20110224
  Transmission Date: 20110831
  Serious: Yes (Other)
  Sender: FDA-Public Use
  Company Number: JP-PFIZER INC-2011040145

PATIENT
  Age: 73 Year
  Sex: Male

DRUGS (9)
  1. CELECOXIB [Concomitant]
     Dosage: UNK
  2. DEPAS [Concomitant]
     Dosage: UNK
  3. SHAKUYAKU-KANZO-TO [Concomitant]
     Dosage: UNK
  4. MYCOSPOR [Concomitant]
     Dosage: UNK
  5. KARY UNI [Concomitant]
     Dosage: UNK
  6. GASTER [Concomitant]
     Dosage: UNK
  7. PRORENAL [Concomitant]
     Dosage: UNK
  8. LYRICA [Suspect]
     Indication: PAIN
     Dosage: 25 MG, 2X/DAY
     Route: 048
     Dates: start: 20110101
  9. INDOMETHACIN SODIUM [Concomitant]
     Dosage: UNK

REACTIONS (1)
  - CONVULSION [None]
